FAERS Safety Report 23740999 (Version 1)
Quarter: 2024Q2

REPORT INFORMATION
  Report Type: Spontaneous
  Country: CN (occurrence: CN)
  Receive Date: 20240415
  Receipt Date: 20240415
  Transmission Date: 20240716
  Serious: Yes (Hospitalization)
  Sender: FDA-Public Use
  Company Number: CN-BEIGENE-BGN-2024-005490

PATIENT

DRUGS (5)
  1. TISLELIZUMAB [Suspect]
     Active Substance: TISLELIZUMAB
     Indication: Metastatic lymphoma
     Dosage: 0.2 GRAM
     Route: 041
     Dates: start: 20240324
  2. GIMERACIL\OTERACIL\TEGAFUR [Suspect]
     Active Substance: GIMERACIL\OTERACIL POTASSIUM\TEGAFUR
     Indication: Metastatic lymphoma
     Dosage: 50 MILLIGRAM, BID
     Route: 048
     Dates: start: 20240325
  3. PACLITAXEL [Suspect]
     Active Substance: PACLITAXEL
     Indication: Metastatic lymphoma
     Dosage: 0.2 GRAM
     Route: 041
     Dates: start: 20240324
  4. PACLITAXEL [Suspect]
     Active Substance: PACLITAXEL
     Dosage: 0.1 GRAM
     Route: 041
     Dates: start: 20240328
  5. LENVATINIB MESYLATE [Suspect]
     Active Substance: LENVATINIB MESYLATE
     Indication: Metastatic lymphoma
     Dosage: 8 MILLIGRAM, QD
     Route: 048
     Dates: start: 20240327

REACTIONS (1)
  - Myelosuppression [Recovering/Resolving]

NARRATIVE: CASE EVENT DATE: 20240401
